FAERS Safety Report 8309748-X (Version None)
Quarter: 2012Q2

REPORT INFORMATION
  Report Type: 
  Country: None (occurrence: None)
  Receive Date: 20120425
  Receipt Date: 20120413
  Transmission Date: 20120825
  Serious: Yes (Other)
  Sender: FDA-Public Use
  Company Number: PHHY2012ES034034

PATIENT
  Age: 61 Year
  Sex: Female

DRUGS (1)
  1. FLUVASTATIN [Suspect]
     Indication: LIVER INJURY
     Dosage: 80 MG, UNK

REACTIONS (2)
  - HYPERSENSITIVITY [None]
  - MIXED LIVER INJURY [None]
